FAERS Safety Report 9906504 (Version 6)
Quarter: 2014Q3

REPORT INFORMATION
  Report Type: Report from Study
  Country: US (occurrence: US)
  Receive Date: 20140218
  Receipt Date: 20140813
  Transmission Date: 20150326
  Serious: Yes (Hospitalization)
  Sender: FDA-Public Use
  Company Number: US-BAYER-2014-018175

PATIENT
  Age: 23 Year
  Sex: Female
  Weight: 53.06 kg

DRUGS (9)
  1. REMODULIN [Concomitant]
     Active Substance: TREPROSTINIL
     Indication: COR PULMONALE CHRONIC
     Dosage: 42.48 UG/KG, QD
     Route: 042
     Dates: start: 20090417
  2. TREPROSTINIL [Concomitant]
     Active Substance: TREPROSTINIL
     Indication: PULMONARY HYPERTENSION
     Dosage: 28.5NG/KG/MIN
     Dates: start: 200904
  3. AMITIZA [Concomitant]
     Active Substance: LUBIPROSTONE
     Indication: CONSTIPATION
  4. ADEMPAS [Suspect]
     Active Substance: RIOCIGUAT
     Indication: PULMONARY INFARCTION
     Dosage: 2.5 MG, TID
     Route: 048
     Dates: start: 20140108
  5. ADCIRCA [Concomitant]
     Active Substance: TADALAFIL
     Indication: PRODUCT USED FOR UNKNOWN INDICATION
  6. ADEMPAS [Suspect]
     Active Substance: RIOCIGUAT
     Indication: PULMONARY EMBOLISM
     Dosage: 2.5 MG, TID
     Route: 048
     Dates: start: 20090610
  7. ADEMPAS [Suspect]
     Active Substance: RIOCIGUAT
     Indication: COR PULMONALE CHRONIC
     Dosage: 2.5 MG, TID
     Route: 048
     Dates: start: 20140114
  8. WARFARIN [Concomitant]
     Active Substance: WARFARIN
     Indication: PRODUCT USED FOR UNKNOWN INDICATION
  9. LETAIRIS [Concomitant]
     Active Substance: AMBRISENTAN
     Indication: PRODUCT USED FOR UNKNOWN INDICATION

REACTIONS (15)
  - Cough [Recovered/Resolved]
  - Pain in jaw [None]
  - Flatulence [None]
  - Fluid retention [None]
  - Fluid overload [Recovered/Resolved]
  - Right ventricular dysfunction [Recovering/Resolving]
  - Blood potassium increased [Recovered/Resolved]
  - Constipation [None]
  - Drug dose omission [None]
  - Weight increased [Unknown]
  - Abdominal distension [None]
  - Fatigue [None]
  - Dyspnoea [None]
  - Myalgia [None]
  - Blood pressure systolic decreased [None]

NARRATIVE: CASE EVENT DATE: 20140130
